FAERS Safety Report 8414629-7 (Version None)
Quarter: 2012Q2

REPORT INFORMATION
  Report Type: 
  Country: None (occurrence: None)
  Receive Date: 20120605
  Receipt Date: 20120521
  Transmission Date: 20120825
  Serious: Yes (Hospitalization)
  Sender: FDA-Public Use
  Company Number: PT-WATSON-2012-09347

PATIENT
  Age: 8 Year
  Sex: Male

DRUGS (3)
  1. PREDNISOLONE [Suspect]
     Indication: CARDITIS
     Dosage: UNK
     Route: 065
  2. PENICILLIN [Suspect]
     Indication: CARDITIS
     Dosage: UNK
     Route: 065
  3. ASPIRIN [Suspect]
     Indication: CARDITIS
     Dosage: UNK
     Route: 065

REACTIONS (1)
  - HEPATITIS TOXIC [None]
